FAERS Safety Report 11794459 (Version 1)
Quarter: 2015Q4

REPORT INFORMATION
  Report Type: Not Available
  Country: US (occurrence: US)
  Receive Date: 20151202
  Receipt Date: 20151202
  Transmission Date: 20160305
  Serious: Yes (Other)
  Sender: FDA-Public Use
  Company Number: US-EXELTIS USA INC.-1044939

PATIENT
  Age: 68 Year
  Sex: Male
  Weight: 102.27 kg

DRUGS (3)
  1. ECOZA [Suspect]
     Active Substance: ECONAZOLE NITRATE
     Indication: TINEA PEDIS
     Route: 061
     Dates: start: 20140611, end: 20140613
  2. AMLODIPINE BESYLATE. [Concomitant]
     Active Substance: AMLODIPINE BESYLATE
  3. COUMADIN [Concomitant]
     Active Substance: WARFARIN SODIUM

REACTIONS (1)
  - Dermatitis allergic [Unknown]

NARRATIVE: CASE EVENT DATE: 20140614
